FAERS Safety Report 17119870 (Version 1)
Quarter: 2019Q4

REPORT INFORMATION
  Report Type: Spontaneous
  Country: ES (occurrence: ES)
  Receive Date: 20191206
  Receipt Date: 20191206
  Transmission Date: 20200122
  Serious: Yes (Life-Threatening, Hospitalization)
  Sender: FDA-Public Use
  Company Number: ES-TEVA-2019-ES-1147177

PATIENT
  Age: 59 Year
  Sex: Female
  Weight: 50 kg

DRUGS (2)
  1. PACLITAXEL (2698A) [Suspect]
     Active Substance: PACLITAXEL
     Indication: CHEMOTHERAPY
     Route: 042
     Dates: start: 20191028
  2. CARBOPLATINO ACCORD 10 MG/ML CONCENTRADO PARA SOLUCION PARA PERFUSION [Suspect]
     Active Substance: CARBOPLATIN
     Indication: CHEMOTHERAPY
     Route: 042
     Dates: start: 20191028

REACTIONS (3)
  - Sepsis [Unknown]
  - Diarrhoea [Recovered/Resolved]
  - Pancytopenia [Recovering/Resolving]

NARRATIVE: CASE EVENT DATE: 20191102
